FAERS Safety Report 7221196-2 (Version None)
Quarter: 2011Q1

REPORT INFORMATION
  Report Type: 
  Country: None (occurrence: None)
  Receive Date: 20110112
  Receipt Date: 20110103
  Transmission Date: 20110831
  Serious: Yes (Other)
  Sender: FDA-Public Use
  Company Number: ES-ELI_LILLY_AND_COMPANY-ES201101000294

PATIENT
  Sex: Male
  Weight: 70 kg

DRUGS (6)
  1. ATACAND [Concomitant]
     Indication: HYPERTENSION
     Dosage: 4 NG, DAILY (1/D)
     Route: 048
  2. CHEMOTHERAPEUTICS [Concomitant]
     Indication: RECTAL CANCER
  3. GELOCATIL [Concomitant]
     Indication: PAIN
     Dosage: 1 D/F, DAILY (1/D)
     Route: 048
  4. ASTUDAL [Concomitant]
     Indication: HYPERTENSION
     Dosage: 2.5 MG, DAILY (1/D)
     Route: 048
  5. FORTEO [Suspect]
     Indication: OSTEOPOROSIS
     Dosage: 20 UG, DAILY (1/D)
     Route: 058
     Dates: start: 20101209, end: 20110101
  6. NATECAL D [Concomitant]
     Indication: OSTEOPOROSIS
     Dosage: 1 D/F, DAILY (1/D)
     Route: 048

REACTIONS (3)
  - HYPOTENSION [None]
  - INSOMNIA [None]
  - DIZZINESS [None]
